FAERS Safety Report 23405586 (Version 1)
Quarter: 2024Q1

REPORT INFORMATION
  Report Type: Spontaneous
  Country: US (occurrence: None)
  Receive Date: 20240113
  Receipt Date: 20240113
  Transmission Date: 20240409
  Serious: Yes (Disabling, Other)
  Sender: FDA-Public Use
  Company Number: None

PATIENT
  Age: 40 Year
  Sex: Male
  Weight: 72 kg

DRUGS (5)
  1. HERBALS\MITRAGYNINE [Suspect]
     Active Substance: HERBALS\MITRAGYNINE
     Indication: Depression
  2. HERBALS\MITRAGYNINE [Suspect]
     Active Substance: HERBALS\MITRAGYNINE
  3. LUNESTA [Concomitant]
     Active Substance: ESZOPICLONE
  4. VALIUM [Concomitant]
     Active Substance: DIAZEPAM
  5. Centrum multivitamin [Concomitant]

REACTIONS (8)
  - Drug dependence [None]
  - Product advertising issue [None]
  - Product formulation issue [None]
  - Psychotic disorder [None]
  - Tremor [None]
  - Hallucination [None]
  - Dependence [None]
  - Product measured potency issue [None]

NARRATIVE: CASE EVENT DATE: 20240113
